FAERS Safety Report 15880391 (Version 1)
Quarter: 2019Q1

REPORT INFORMATION
  Report Type: Spontaneous
  Country: US (occurrence: US)
  Receive Date: 20190128
  Receipt Date: 20190128
  Transmission Date: 20190417
  Serious: No
  Sender: FDA-Public Use
  Company Number: US-BIOMARINAP-US-2019-121628

PATIENT
  Age: 34 Year
  Sex: Female

DRUGS (1)
  1. PALYNZIQ [Suspect]
     Active Substance: PEGVALIASE-PQPZ
     Indication: PRODUCT USED FOR UNKNOWN INDICATION
     Dosage: UNK UNK, QW
     Route: 058
     Dates: start: 20190110

REACTIONS (2)
  - Arthralgia [Unknown]
  - Pain in extremity [Unknown]

NARRATIVE: CASE EVENT DATE: 20190121
